FAERS Safety Report 14125676 (Version 3)
Quarter: 2017Q4

REPORT INFORMATION
  Report Type: Spontaneous
  Country: US (occurrence: US)
  Receive Date: 20171025
  Receipt Date: 20171110
  Transmission Date: 20180321
  Serious: No
  Sender: FDA-Public Use
  Company Number: US-GLAXOSMITHKLINE-US2017161313

PATIENT
  Age: 51 Year
  Sex: Male
  Weight: 97.96 kg

DRUGS (1)
  1. NUCALA [Suspect]
     Active Substance: MEPOLIZUMAB
     Indication: PRODUCT USED FOR UNKNOWN INDICATION
     Dosage: UNK
     Route: 042
     Dates: start: 20171019

REACTIONS (3)
  - Underdose [Unknown]
  - Accidental exposure to product [Unknown]
  - Drug administered in wrong device [Unknown]

NARRATIVE: CASE EVENT DATE: 20171019
